FAERS Safety Report 9410836 (Version 2)
Quarter: 2013Q3

REPORT INFORMATION
  Report Type: Spontaneous
  Country: PT (occurrence: PT)
  Receive Date: 20130719
  Receipt Date: 20130903
  Transmission Date: 20140515
  Serious: Yes (Other)
  Sender: FDA-Public Use
  Company Number: PT-ABBOTT-13P-130-1119436-00

PATIENT
  Age: 33 Year
  Sex: Female
  Weight: 64 kg

DRUGS (2)
  1. LUCRIN DEPOT [Suspect]
     Indication: BREAST CANCER
     Route: 058
     Dates: start: 20130621, end: 20130621
  2. TAMOXIFEN [Concomitant]
     Indication: BREAST CANCER
     Dates: start: 20110614

REACTIONS (6)
  - Hypertension [Recovered/Resolved]
  - Pruritus [Recovered/Resolved]
  - Rash [Recovered/Resolved]
  - Tachycardia [Recovered/Resolved]
  - Urticaria [Recovered/Resolved]
  - Vision blurred [Recovered/Resolved]
